FAERS Safety Report 5055883-1 (Version None)
Quarter: 2006Q3

REPORT INFORMATION
  Report Type: 
  Country: None (occurrence: None)
  Receive Date: 20060720
  Receipt Date: 20060712
  Transmission Date: 20061208
  Serious: Yes (Hospitalization)
  Sender: FDA-Public Use
  Company Number: FR-JNJFOC-20060605721

PATIENT
  Age: 60 Year
  Sex: Male

DRUGS (8)
  1. HALDOL [Suspect]
     Route: 048
  2. HALDOL [Suspect]
     Dosage: PATIENT TOOK 3 TIMES DOSE
     Route: 048
  3. HALDOL [Suspect]
     Indication: PSYCHOTIC DISORDER
     Route: 048
  4. NOZINAN [Suspect]
     Route: 048
  5. NOZINAN [Suspect]
     Dosage: PATIENT TOOK 3 TIMES DOSE
     Route: 048
  6. NOZINAN [Suspect]
     Indication: PSYCHOTIC DISORDER
     Route: 048
  7. HEPTAMYL [Concomitant]
  8. AKINETON [Concomitant]

REACTIONS (5)
  - ACCIDENTAL OVERDOSE [None]
  - COMA [None]
  - DYSPNOEA [None]
  - HYPOAESTHESIA [None]
  - SOMNOLENCE [None]
